FAERS Safety Report 7974144-1 (Version None)
Quarter: 2011Q4

REPORT INFORMATION
  Report Type: 
  Country: None (occurrence: None)
  Receive Date: 20111213
  Receipt Date: 20111207
  Transmission Date: 20120403
  Serious: Yes (Other)
  Sender: FDA-Public Use
  Company Number: US-PFIZER INC-2011299639

PATIENT
  Sex: Female
  Weight: 77.098 kg

DRUGS (1)
  1. NITROSTAT [Suspect]
     Indication: ANGINA PECTORIS
     Dosage: UNK, AS NEEDED
     Route: 060

REACTIONS (1)
  - CHEST PAIN [None]
